FAERS Safety Report 18229877 (Version 1)
Quarter: 2020Q3

REPORT INFORMATION
  Report Type: Report from Study
  Country: None (occurrence: US)
  Receive Date: 20200904
  Receipt Date: 20200904
  Transmission Date: 20201103
  Serious: Yes (Hospitalization)
  Sender: FDA-Public Use
  Company Number: US-ABBVIE-20K-163-3544300-00

PATIENT
  Sex: Male

DRUGS (2)
  1. HUMIRA [Suspect]
     Active Substance: ADALIMUMAB
     Indication: CROHN^S DISEASE
     Dosage: CITRATE FREE
     Route: 058
     Dates: start: 20200301
  2. HUMIRA [Suspect]
     Active Substance: ADALIMUMAB
     Indication: CROHN^S DISEASE

REACTIONS (6)
  - Drug level decreased [Recovering/Resolving]
  - Inflammation [Recovering/Resolving]
  - Crohn^s disease [Recovering/Resolving]
  - Blood iron decreased [Recovering/Resolving]
  - Pain [Recovering/Resolving]
  - Suspected COVID-19 [Unknown]

NARRATIVE: CASE EVENT DATE: 2020
